FAERS Safety Report 5457446-2 (Version None)
Quarter: 2007Q3

REPORT INFORMATION
  Report Type: 
  Country: None (occurrence: None)
  Receive Date: 20070918
  Receipt Date: 20070911
  Transmission Date: 20080115
  Serious: Yes (Death)
  Sender: FDA-Public Use
  Company Number: MW-GILEAD-2007-0013036

PATIENT
  Age: 41 Year
  Sex: Male
  Weight: 58.5 kg

DRUGS (9)
  1. EMTRICITABINE [Suspect]
     Indication: HIV INFECTION
     Route: 048
     Dates: start: 20060217, end: 20070718
  2. TENOFOVIR DISOPROXIL FUMARATE [Suspect]
     Indication: HIV INFECTION
     Route: 048
     Dates: start: 20060217, end: 20070718
  3. ATAZANAVIR SULFATE [Suspect]
     Indication: HIV INFECTION
     Route: 048
     Dates: start: 20060928, end: 20070718
  4. KALETRA [Suspect]
     Indication: HIV INFECTION
     Route: 048
     Dates: start: 20060928, end: 20070718
  5. OMEPRAZOLE [Concomitant]
     Route: 065
     Dates: start: 20070604
  6. CIPROFLOXACIN [Concomitant]
     Route: 065
     Dates: start: 20070604
  7. PARACETAMOL [Concomitant]
     Route: 065
     Dates: start: 20070604
  8. BUSCOPAN [Concomitant]
     Route: 065
     Dates: start: 20070604
  9. FLUCONAZOLE [Concomitant]
     Route: 065
     Dates: start: 20070604

REACTIONS (1)
  - DEATH [None]
